FAERS Safety Report 8784934 (Version 2)
Quarter: 2012Q4

REPORT INFORMATION
  Report Type: Report from Study
  Country: US (occurrence: US)
  Receive Date: 20120914
  Receipt Date: 20120918
  Transmission Date: 20130627
  Serious: Yes (Hospitalization)
  Sender: FDA-Public Use
  Company Number: US-JNJFOC-20120904373

PATIENT
  Age: 16 Year
  Sex: Female
  Weight: 49 kg

DRUGS (9)
  1. REMICADE [Suspect]
     Indication: CROHN^S DISEASE
     Route: 042
     Dates: start: 20120503
  2. REMICADE [Suspect]
     Indication: CROHN^S DISEASE
     Route: 042
     Dates: start: 20110427
  3. 5-ASA [Concomitant]
     Route: 048
  4. VITAMIN D [Concomitant]
  5. NEXIUM [Concomitant]
  6. PROBIOTICS [Concomitant]
  7. WELLBUTRIN [Concomitant]
  8. FLUOXETINE [Concomitant]
  9. MELATONIN [Concomitant]

REACTIONS (1)
  - Crohn^s disease [Recovered/Resolved]
